FAERS Safety Report 5028663-0 (Version None)
Quarter: 2006Q2

REPORT INFORMATION
  Report Type: 
  Country: None (occurrence: None)
  Receive Date: 20060619
  Receipt Date: 20060612
  Transmission Date: 20061013
  Serious: Yes (Death)
  Sender: FDA-Public Use
  Company Number: PHEH2006US07656

PATIENT
  Age: 78 Year
  Sex: Male

DRUGS (1)
  1. EXJADE [Suspect]
     Indication: BLOOD IRON INCREASED
     Dosage: 2000 MG, QD
     Route: 048
     Dates: start: 20060427

REACTIONS (3)
  - BRADYCARDIA [None]
  - CARDIAC ARREST [None]
  - POST PROCEDURAL COMPLICATION [None]
